FAERS Safety Report 9531746 (Version 1)
Quarter: 2013Q3

REPORT INFORMATION
  Report Type: Spontaneous
  Country: US (occurrence: US)
  Receive Date: 20130918
  Receipt Date: 20130918
  Transmission Date: 20140515
  Serious: No
  Sender: FDA-Public Use
  Company Number: US-PFIZER INC-2013265673

PATIENT
  Sex: 0

DRUGS (1)
  1. ADVIL PM [Suspect]
     Dosage: UNK
     Route: 048

REACTIONS (4)
  - Overdose [Unknown]
  - Malaise [Unknown]
  - Heart rate increased [Unknown]
  - Dizziness [Unknown]
